FAERS Safety Report 6968864-5 (Version None)
Quarter: 2010Q3

REPORT INFORMATION
  Report Type: 
  Country: None (occurrence: None)
  Receive Date: 20100907
  Receipt Date: 20100901
  Transmission Date: 20110219
  Serious: Yes (Death, Hospitalization, Other)
  Sender: FDA-Public Use
  Company Number: US-GENZYME-CERZ-1001393

PATIENT

DRUGS (3)
  1. CEREZYME [Suspect]
     Indication: GAUCHER'S DISEASE
     Dosage: 4800 U, Q2W
     Route: 042
     Dates: start: 19970707
  2. ZOMETA [Concomitant]
     Indication: BONE DISORDER
  3. METHADONE [Concomitant]
     Indication: BONE DISORDER

REACTIONS (30)
  - ABDOMINAL DISTENSION [None]
  - ACIDOSIS [None]
  - BONE DISORDER [None]
  - CHRONIC LYMPHOCYTIC LEUKAEMIA [None]
  - CONSTIPATION [None]
  - CONTUSION [None]
  - DYSPHAGIA [None]
  - ERYTHEMA [None]
  - FALL [None]
  - GASTRIC OCCULT BLOOD POSITIVE [None]
  - ISCHAEMIA [None]
  - KLEBSIELLA TEST POSITIVE [None]
  - MENTAL STATUS CHANGES [None]
  - MONOCLONAL GAMMOPATHY [None]
  - MUSCULOSKELETAL PAIN [None]
  - OSTEONECROSIS [None]
  - PAIN [None]
  - PAIN IN JAW [None]
  - PANCREATITIS [None]
  - PATHOGEN RESISTANCE [None]
  - PNEUMONIA [None]
  - PULMONARY HYPERTENSION [None]
  - REFUSAL OF TREATMENT BY PATIENT [None]
  - RENAL FAILURE ACUTE [None]
  - RESPIRATORY DISTRESS [None]
  - SEPSIS [None]
  - STAPHYLOCOCCUS TEST POSITIVE [None]
  - STASIS DERMATITIS [None]
  - THERAPY CESSATION [None]
  - VOMITING [None]
